FAERS Safety Report 14105708 (Version 1)
Quarter: 2017Q4

REPORT INFORMATION
  Report Type: Spontaneous
  Country: US (occurrence: US)
  Receive Date: 20171018
  Receipt Date: 20171018
  Transmission Date: 20180321
  Serious: Yes (Other)
  Sender: FDA-Public Use
  Company Number: US-LUNDBECK-DKLU2038498

PATIENT
  Sex: Male

DRUGS (10)
  1. VIMPAT [Concomitant]
     Active Substance: LACOSAMIDE
     Indication: MUSCLE SPASTICITY
     Route: 048
  2. KEPPRA [Concomitant]
     Active Substance: LEVETIRACETAM
     Indication: CEREBRAL PALSY
     Route: 065
  3. BACLOFEN. [Interacting]
     Active Substance: BACLOFEN
     Indication: MUSCLE SPASTICITY
     Route: 037
  4. TRILEPTAL [Concomitant]
     Active Substance: OXCARBAZEPINE
     Indication: MUSCLE SPASTICITY
     Route: 065
  5. BACLOFEN. [Interacting]
     Active Substance: BACLOFEN
     Indication: CEREBRAL PALSY
  6. BANZEL [Concomitant]
     Active Substance: RUFINAMIDE
     Indication: SEIZURE
     Route: 065
  7. BANZEL [Concomitant]
     Active Substance: RUFINAMIDE
     Route: 065
  8. KEPPRA [Concomitant]
     Active Substance: LEVETIRACETAM
     Route: 065
  9. KEPPRA [Concomitant]
     Active Substance: LEVETIRACETAM
     Route: 065
  10. ONFI [Suspect]
     Active Substance: CLOBAZAM
     Indication: MUSCLE SPASTICITY
     Route: 065

REACTIONS (6)
  - Sepsis [Unknown]
  - Muscle spasms [Unknown]
  - Urinary retention [Unknown]
  - Urinary tract infection [Unknown]
  - Drug interaction [Unknown]
  - Anxiety [Unknown]

NARRATIVE: CASE EVENT DATE: 201502
